FAERS Safety Report 8166163-X (Version None)
Quarter: 2012Q1

REPORT INFORMATION
  Report Type: 
  Country: None (occurrence: None)
  Receive Date: 20120227
  Receipt Date: 20110615
  Transmission Date: 20120608
  Serious: No
  Sender: FDA-Public Use
  Company Number: US-MYLANLABS-2011S1008001

PATIENT
  Age: 16 Year
  Sex: Male
  Weight: 66.68 kg

DRUGS (3)
  1. AMNESTEEM [Suspect]
     Route: 048
     Dates: start: 20111029
  2. AMNESTEEM [Suspect]
     Route: 048
     Dates: start: 20110210, end: 20110404
  3. AMNESTEEM [Suspect]
     Indication: ACNE
     Route: 048

REACTIONS (3)
  - FEELING ABNORMAL [None]
  - CONFUSIONAL STATE [None]
  - DISTURBANCE IN ATTENTION [None]
